FAERS Safety Report 17013097 (Version 1)
Quarter: 2019Q4

REPORT INFORMATION
  Report Type: Spontaneous
  Country: US (occurrence: US)
  Receive Date: 20191001
  Receipt Date: 20191001
  Transmission Date: 20200122
  Serious: Yes (Hospitalization)
  Sender: FDA-Public Use
  Company Number: None

PATIENT
  Age: 71 Year
  Sex: Male

DRUGS (1)
  1. CIPROFLOXACIN. [Suspect]
     Active Substance: CIPROFLOXACIN
     Indication: BACTERAEMIA
     Route: 048
     Dates: start: 20190628, end: 20190808

REACTIONS (5)
  - Clostridium difficile infection [None]
  - Fatigue [None]
  - Dehydration [None]
  - Leukocytosis [None]
  - Acute kidney injury [None]

NARRATIVE: CASE EVENT DATE: 20190926
